FAERS Safety Report 7348013-4 (Version None)
Quarter: 2011Q1

REPORT INFORMATION
  Report Type: 
  Country: None (occurrence: None)
  Receive Date: 20110311
  Receipt Date: 20090731
  Transmission Date: 20110831
  Serious: Yes (Hospitalization)
  Sender: FDA-Public Use
  Company Number: US-BAYER-200927123GPV

PATIENT
  Sex: Male
  Weight: 53 kg

DRUGS (2)
  1. SORAFENIB (RAF KINASE INHIBITOR) [Suspect]
     Indication: HEPATIC NEOPLASM MALIGNANT
     Dosage: 400 MG, QD
     Dates: start: 20090601, end: 20090713
  2. CLINDAMYCIN [Concomitant]
     Indication: CAMPYLOBACTER INFECTION

REACTIONS (2)
  - HEPATIC FUNCTION ABNORMAL [None]
  - SEPSIS [None]
